FAERS Safety Report 6889229-0 (Version None)
Quarter: 2010Q3

REPORT INFORMATION
  Report Type: 
  Country: None (occurrence: None)
  Receive Date: 20100730
  Receipt Date: 20080111
  Transmission Date: 20110219
  Serious: No
  Sender: FDA-Public Use
  Company Number: US-PFIZER INC-2008004394

PATIENT
  Sex: Female
  Weight: 50 kg

DRUGS (5)
  1. LIPITOR [Suspect]
     Indication: BLOOD CHOLESTEROL INCREASED
     Dates: start: 20060601, end: 20071204
  2. COUMADIN [Concomitant]
  3. COZAAR [Concomitant]
  4. LASIX [Concomitant]
  5. KLOR-CON [Concomitant]

REACTIONS (7)
  - BACK PAIN [None]
  - GROIN PAIN [None]
  - HIGH DENSITY LIPOPROTEIN DECREASED [None]
  - INSOMNIA [None]
  - LOW DENSITY LIPOPROTEIN DECREASED [None]
  - MUSCULOSKELETAL PAIN [None]
  - PAIN IN EXTREMITY [None]
